FAERS Safety Report 11145078 (Version 1)
Quarter: 2015Q2

REPORT INFORMATION
  Report Type: Spontaneous
  Country: US (occurrence: US)
  Receive Date: 20150526
  Receipt Date: 20150526
  Transmission Date: 20150821
  Serious: Yes (Hospitalization)
  Sender: FDA-Public Use
  Company Number: US-BEH-2015051250

PATIENT
  Age: 11 Year
  Sex: Female
  Weight: 55 kg

DRUGS (26)
  1. SOLU-MEDROL [Concomitant]
     Active Substance: METHYLPREDNISOLONE SODIUM SUCCINATE
  2. REMICADE [Concomitant]
     Active Substance: INFLIXIMAB
  3. DIFLUCAN [Concomitant]
     Active Substance: FLUCONAZOLE
  4. NEXIUM [Concomitant]
     Active Substance: ESOMEPRAZOLE MAGNESIUM
  5. HEPARIN [Concomitant]
     Active Substance: HEPARIN SODIUM
  6. AMMONIUM LACTATE. [Concomitant]
     Active Substance: AMMONIUM LACTATE
  7. PRIVIGEN [Suspect]
     Active Substance: HUMAN IMMUNOGLOBULIN G
     Indication: DERMATOMYOSITIS
     Route: 042
  8. NYSTATIN. [Concomitant]
     Active Substance: NYSTATIN
  9. PRIVIGEN [Suspect]
     Active Substance: HUMAN IMMUNOGLOBULIN G
     Route: 042
  10. ACETAMINOPHEN. [Concomitant]
     Active Substance: ACETAMINOPHEN
  11. PREDNISONE. [Concomitant]
     Active Substance: PREDNISONE
  12. PREVACID [Concomitant]
     Active Substance: LANSOPRAZOLE
  13. DEXTROSE. [Concomitant]
     Active Substance: DEXTROSE
  14. ZOFRAN [Concomitant]
     Active Substance: ONDANSETRON HYDROCHLORIDE
  15. TRAMADOL [Concomitant]
     Active Substance: TRAMADOL
  16. HYDROXYZINE [Concomitant]
     Active Substance: HYDROXYZINE\HYDROXYZINE HYDROCHLORIDE
  17. METHOTREXATE [Concomitant]
     Active Substance: METHOTREXATE
  18. LMX [Concomitant]
     Active Substance: LIDOCAINE
  19. VANICREAM [Concomitant]
     Active Substance: TITANIUM DIOXIDE\ZINC OXIDE
  20. PLAQUENIL [Concomitant]
     Active Substance: HYDROXYCHLOROQUINE SULFATE
  21. DIPHENHYDRAMINE [Concomitant]
     Active Substance: DIPHENHYDRAMINE
  22. SODIUM CHLORIDE. [Concomitant]
     Active Substance: SODIUM CHLORIDE
  23. EPIPEN [Concomitant]
     Active Substance: EPINEPHRINE
     Indication: ANAPHYLACTIC REACTION
  24. HYDROCORT-PRAMOXINE [Concomitant]
  25. VALIUM [Concomitant]
     Active Substance: DIAZEPAM
  26. FOLIC ACID. [Concomitant]
     Active Substance: FOLIC ACID

REACTIONS (1)
  - Device related infection [Recovered/Resolved]

NARRATIVE: CASE EVENT DATE: 20150320
